FAERS Safety Report 8773976 (Version 2)
Quarter: 2012Q4

REPORT INFORMATION
  Report Type: 
  Country: US (occurrence: US)
  Receive Date: 20120907
  Receipt Date: 20120920
  Transmission Date: 20130627
  Serious: No
  Sender: FDA-Public Use
  Company Number: US-PFIZER INC-2012219137

PATIENT
  Sex: Female

DRUGS (3)
  1. XANAX [Suspect]
     Indication: MUSCLE SPASMS
     Dosage: 0.5 mg, as needed
     Dates: start: 20020905
  2. XANAX [Suspect]
     Indication: GASTRIC DISORDER
  3. ALPRAZOLAM [Suspect]
     Indication: GASTRIC DISORDER
     Dosage: UNK

REACTIONS (2)
  - Off label use [Unknown]
  - Drug ineffective for unapproved indication [Unknown]
